FAERS Safety Report 24803117 (Version 1)
Quarter: 2025Q1

REPORT INFORMATION
  Report Type: Spontaneous
  Country: GB (occurrence: GB)
  Receive Date: 20250103
  Receipt Date: 20250103
  Transmission Date: 20250409
  Serious: Yes (Other)
  Sender: AUROBINDO
  Company Number: GB-MHRA-EMIS-12608-431404af-b287-42d5-86b5-5ebca0795acd

PATIENT
  Age: 81 Year
  Sex: Female
  Weight: 62 kg

DRUGS (3)
  1. APIXABAN [Suspect]
     Active Substance: APIXABAN
     Indication: Atrial fibrillation
     Dosage: 1 DOSAGE FORM, TWO TIMES A DAY
     Route: 065
     Dates: start: 20241205, end: 20241212
  2. SPIKEVAX [Concomitant]
     Active Substance: CX-046684
     Indication: Product used for unknown indication
     Route: 030
     Dates: start: 20241008
  3. BISOPROLOL [Concomitant]
     Active Substance: BISOPROLOL
     Indication: Product used for unknown indication
     Dosage: 1 DOSAGE FORM, TWO TIMES A DAY
     Route: 065
     Dates: start: 20241205

REACTIONS (1)
  - Hepatic enzyme increased [Unknown]
